FAERS Safety Report 21218103 (Version 1)
Quarter: 2022Q3

REPORT INFORMATION
  Report Type: Spontaneous
  Country: US (occurrence: None)
  Receive Date: 20220816
  Receipt Date: 20220816
  Transmission Date: 20221026
  Serious: Yes (Hospitalization, Disabling)
  Sender: FDA-Public Use
  Company Number: None

PATIENT
  Age: 75 Year
  Sex: Male
  Weight: 78.47 kg

DRUGS (2)
  1. MAGNESIUM CITRATE SALINE LAXATIVE [Suspect]
     Active Substance: MAGNESIUM CITRATE
     Indication: Colonoscopy
     Dates: start: 20220531, end: 20220531
  2. herban remedies [Concomitant]

REACTIONS (4)
  - Diarrhoea [None]
  - Dehydration [None]
  - Fall [None]
  - Clostridium difficile infection [None]

NARRATIVE: CASE EVENT DATE: 20220604
